FAERS Safety Report 4375088-7 (Version None)
Quarter: 2004Q2

REPORT INFORMATION
  Report Type: 
  Country: None (occurrence: None)
  Receive Date: 20040603
  Receipt Date: 20040521
  Transmission Date: 20050107
  Serious: Yes (Other)
  Sender: FDA-Public Use
  Company Number: JP-JNJFOC-20040506143

PATIENT
  Sex: Male

DRUGS (1)
  1. ITRACONAZOLE [Suspect]
     Indication: ONYCHOMYCOSIS
     Dosage: 200 MG, IN 1 DAY, ORAL
     Route: 048

REACTIONS (2)
  - HYPERKALAEMIA [None]
  - TREATMENT NONCOMPLIANCE [None]
